FAERS Safety Report 6007229-X (Version None)
Quarter: 2008Q4

REPORT INFORMATION
  Report Type: 
  Country: None (occurrence: None)
  Receive Date: 20081217
  Receipt Date: 20080211
  Transmission Date: 20090506
  Serious: No
  Sender: FDA-Public Use
  Company Number: US-ASTRAZENECA-2008UW02858

PATIENT
  Age: 79 Year
  Sex: Female
  Weight: 72.6 kg

DRUGS (7)
  1. CRESTOR [Suspect]
     Indication: BLOOD CHOLESTEROL INCREASED
     Route: 048
     Dates: start: 20071001
  2. PLAVIX [Concomitant]
  3. ASPIRIN [Concomitant]
  4. AVALIDE [Concomitant]
     Dosage: 300/25 MG QD
  5. OMEPRAZOLE [Concomitant]
  6. POTASSIUM CHLORIDE [Concomitant]
  7. ACEBUTOLOL [Concomitant]

REACTIONS (5)
  - DECREASED APPETITE [None]
  - DIZZINESS [None]
  - EAR DISCOMFORT [None]
  - MUSCLE SPASMS [None]
  - NAUSEA [None]
